FAERS Safety Report 21684646 (Version 1)
Quarter: 2022Q4

REPORT INFORMATION
  Report Type: Report from Study
  Country: US (occurrence: US)
  Receive Date: 20221205
  Receipt Date: 20221205
  Transmission Date: 20230113
  Serious: Yes (Hospitalization)
  Sender: FDA-Public Use
  Company Number: US-GILEAD-2022-0607524

PATIENT
  Age: 58 Year
  Sex: Female

DRUGS (1)
  1. AZTREONAM LYSINE [Suspect]
     Active Substance: AZTREONAM LYSINE
     Indication: Cystic fibrosis
     Dosage: 75MG AMPULE INHALE THE CONTENTS OF 1 VIAL 3 TIMES DAILY
     Route: 055
     Dates: start: 20220615

REACTIONS (1)
  - Carbon dioxide increased [Unknown]

NARRATIVE: CASE EVENT DATE: 20221101
